FAERS Safety Report 9628025 (Version 2)
Quarter: 2013Q4

REPORT INFORMATION
  Report Type: Spontaneous
  Country: GB (occurrence: GB)
  Receive Date: 20131016
  Receipt Date: 20131016
  Transmission Date: 20140711
  Serious: Yes (Hospitalization, Other)
  Sender: FDA-Public Use
  Company Number: GB-ACTAVIS-2004-05958

PATIENT
  Age: 33 Year
  Sex: Female

DRUGS (3)
  1. IBUPROFEN (UNKNOWN) [Suspect]
     Indication: PRODUCT USED FOR UNKNOWN INDICATION
     Dosage: UNK; DOSAGE FORM: UNSPECIFIED
     Route: 065
  2. ETHANOL [Suspect]
     Indication: PRODUCT USED FOR UNKNOWN INDICATION
     Dosage: DOSAGE FORM: UNKNOWN, DAILY DOSE TEXT: UNSPECIFIED
     Route: 065
  3. CLOZARIL [Suspect]
     Indication: ACCIDENTAL EXPOSURE TO PRODUCT
     Dosage: DOSAGE FORM: UNKNOWN, DAILY DOSE TEXT: UNSPECIFIED
     Route: 048
     Dates: start: 20030819, end: 20030820

REACTIONS (4)
  - Blood pressure decreased [Recovered/Resolved]
  - Somnolence [Recovered/Resolved]
  - Intentional overdose [Unknown]
  - White blood cell count increased [Unknown]
